FAERS Safety Report 25943320 (Version 1)
Quarter: 2025Q4

REPORT INFORMATION
  Report Type: Spontaneous
  Country: US (occurrence: None)
  Receive Date: 20251020
  Receipt Date: 20251020
  Transmission Date: 20260118
  Serious: No
  Sender: FDA-CTU
  Company Number: None

PATIENT
  Age: 29 Year
  Sex: Male
  Weight: 92.25 kg

DRUGS (9)
  1. ACETAMINOPHEN\DEXCHLORPHENIRAMINE MALEATE [Suspect]
     Active Substance: ACETAMINOPHEN\DEXCHLORPHENIRAMINE MALEATE
     Indication: Middle ear effusion
     Dosage: OTHER QUANTITY : 16 TABLET(S);?FREQUENCY : EVERY 6 HOURS;?
     Route: 048
     Dates: start: 20251019, end: 20251019
  2. GABAPENTIN [Suspect]
     Active Substance: GABAPENTIN
  3. TYLENOL [Suspect]
     Active Substance: ACETAMINOPHEN
  4. Gabapentin 600mg 3x daily (total 1800mg) [Concomitant]
  5. Nexium 20mg 1x daily [Concomitant]
  6. Meloxicam 15mg 1x daily [Concomitant]
  7. TYLENOL [Concomitant]
     Active Substance: ACETAMINOPHEN
  8. Body Fortress Whey Protein [Concomitant]
  9. TUMS [Concomitant]
     Active Substance: CALCIUM CARBONATE

REACTIONS (5)
  - Product communication issue [None]
  - Burning sensation [None]
  - Pain in extremity [None]
  - Sensitive skin [None]
  - Product use issue [None]

NARRATIVE: CASE EVENT DATE: 20251020
